FAERS Safety Report 11787592 (Version 2)
Quarter: 2015Q4

REPORT INFORMATION
  Report Type: Spontaneous
  Country: US (occurrence: US)
  Receive Date: 20151130
  Receipt Date: 20151221
  Transmission Date: 20160305
  Serious: Yes (Life-Threatening, Hospitalization)
  Sender: FDA-Public Use
  Company Number: US-TEVA-612790USA

PATIENT
  Age: 47 Year
  Sex: Male

DRUGS (4)
  1. TRAZODONE [Suspect]
     Active Substance: TRAZODONE HYDROCHLORIDE
     Indication: INTENTIONAL OVERDOSE
     Dosage: 9000 MG
     Route: 065
  2. LISINOPRIL. [Suspect]
     Active Substance: LISINOPRIL
     Indication: INTENTIONAL OVERDOSE
     Dosage: 300 MG
     Route: 065
  3. AMLODIPINE [Suspect]
     Active Substance: AMLODIPINE BESYLATE
     Indication: INTENTIONAL OVERDOSE
     Dosage: 300 MG
     Route: 065
  4. HYDROXYZINE [Suspect]
     Active Substance: HYDROXYZINE\HYDROXYZINE HYDROCHLORIDE
     Indication: INTENTIONAL OVERDOSE
     Dosage: 4500 MG
     Route: 065

REACTIONS (3)
  - Intentional overdose [Recovering/Resolving]
  - Shock [Recovering/Resolving]
  - Lactic acidosis [Recovering/Resolving]
